FAERS Safety Report 21372496 (Version 2)
Quarter: 2022Q4

REPORT INFORMATION
  Report Type: Report from Study
  Country: US (occurrence: US)
  Receive Date: 20220924
  Receipt Date: 20221208
  Transmission Date: 20230113
  Serious: Yes (Other)
  Sender: FDA-Public Use
  Company Number: US-NOVARTISTESTPH-NVSC2022US213678

PATIENT
  Sex: Male

DRUGS (2)
  1. COSENTYX [Suspect]
     Active Substance: SECUKINUMAB
     Indication: Psoriasis
     Dosage: UNK (PREVIOUSLY ON COSENTYX FOR 3 YEARS)
     Route: 065
  2. COSENTYX [Suspect]
     Active Substance: SECUKINUMAB
     Dosage: 300 MG, QW (EVERY WEEK FOR 5 WEEKS THEN EVERY 4 WEEKS)
     Route: 058
     Dates: start: 20220912

REACTIONS (3)
  - Rebound psoriasis [Unknown]
  - Arthritis [Unknown]
  - Renal neoplasm [Unknown]
